FAERS Safety Report 16260459 (Version 1)
Quarter: 2019Q2

REPORT INFORMATION
  Report Type: Spontaneous
  Country: SE (occurrence: SE)
  Receive Date: 20190501
  Receipt Date: 20190501
  Transmission Date: 20190711
  Serious: Yes (Hospitalization)
  Sender: FDA-Public Use
  Company Number: SE-TEVA-2019-SE-1043393

PATIENT
  Age: 80 Year
  Sex: Female

DRUGS (2)
  1. FURIX (FUROSEMIDE) [Suspect]
     Active Substance: FUROSEMIDE
     Dates: end: 201903
  2. ENALAPRIL [Suspect]
     Active Substance: ENALAPRIL
     Indication: HYPERTENSION
     Dates: end: 201903

REACTIONS (2)
  - Dermatitis bullous [Not Recovered/Not Resolved]
  - Skin reaction [Not Recovered/Not Resolved]

NARRATIVE: CASE EVENT DATE: 201902
